FAERS Safety Report 18547575 (Version 2)
Quarter: 2020Q4

REPORT INFORMATION
  Report Type: Report from Study
  Country: US (occurrence: US)
  Receive Date: 20201125
  Receipt Date: 20201209
  Transmission Date: 20210114
  Serious: Yes (Death, Life-Threatening, Disabling, Other)
  Sender: FDA-Public Use
  Company Number: US-GILEAD-2020-0493131

PATIENT
  Age: 65 Year
  Sex: Female
  Weight: 67 kg

DRUGS (33)
  1. SODIUM PHOSPHATE [Concomitant]
     Active Substance: SODIUM PHOSPHATE
  2. ACTIVASE [Concomitant]
     Active Substance: ALTEPLASE
  3. TRIAD [Concomitant]
     Active Substance: ACETAMINOPHEN\BUTALBITAL\CAFFEINE
  4. TOCILIZUMAB. [Suspect]
     Active Substance: TOCILIZUMAB
     Indication: COVID-19 PNEUMONIA
     Dosage: AT 16:11
     Route: 042
     Dates: start: 20200808
  5. LANTUS [Concomitant]
     Active Substance: INSULIN GLARGINE
     Dosage: 35 UNITS
     Dates: start: 20200810, end: 20200813
  6. MAGNESIUM SULFATE. [Concomitant]
     Active Substance: MAGNESIUM SULFATE
  7. PRECEDEX [Concomitant]
     Active Substance: DEXMEDETOMIDINE HYDROCHLORIDE
  8. ARIXTRA [Concomitant]
     Active Substance: FONDAPARINUX SODIUM
  9. REMDESIVIR. [Suspect]
     Active Substance: REMDESIVIR
     Indication: COVID-19 PNEUMONIA
     Dosage: 250 ML, MOST RECENT DOSE OF REMDESIVIR PRIOR TO EVENT ONSET: 17/AUG/2020 AT 13:58
     Route: 042
     Dates: start: 20200808
  10. LASIX [Concomitant]
     Active Substance: FUROSEMIDE
     Dates: start: 20200814, end: 20200817
  11. PEPCID [Concomitant]
     Active Substance: FAMOTIDINE
  12. DIPRIVAN [Concomitant]
     Active Substance: PROPOFOL
  13. KLOR-CON [Concomitant]
     Active Substance: POTASSIUM CHLORIDE
  14. ANCEF [Concomitant]
     Active Substance: CEFAZOLIN SODIUM
  15. HUMALOG [Concomitant]
     Active Substance: INSULIN LISPRO
     Dosage: 12 UNITS
     Dates: start: 20200808, end: 20200816
  16. LEVOPHED [Concomitant]
     Active Substance: NOREPINEPHRINE BITARTRATE
     Indication: HYPOTENSION
     Dosage: 8 OTHER
     Dates: start: 20200907
  17. OMNIPAQUE [Concomitant]
     Active Substance: IOHEXOL
  18. DEXTROSE. [Concomitant]
     Active Substance: DEXTROSE
  19. REGLAN [Concomitant]
     Active Substance: METOCLOPRAMIDE HYDROCHLORIDE
  20. DECADRON [Concomitant]
     Active Substance: DEXAMETHASONE
     Indication: ACUTE RESPIRATORY FAILURE
     Dates: start: 20200807, end: 20200816
  21. LOVENOX [Concomitant]
     Active Substance: ENOXAPARIN SODIUM
     Indication: THROMBOSIS PROPHYLAXIS
     Dates: start: 20200807, end: 20200809
  22. LOVENOX [Concomitant]
     Active Substance: ENOXAPARIN SODIUM
     Dosage: 40 MG, QD
     Dates: start: 20200809, end: 20200816
  23. FENTANYL. [Concomitant]
     Active Substance: FENTANYL
  24. NOVOLIN R [Concomitant]
     Active Substance: INSULIN HUMAN
  25. LASIX [Concomitant]
     Active Substance: FUROSEMIDE
     Dates: start: 20200811, end: 20200812
  26. HUMALOG [Concomitant]
     Active Substance: INSULIN LISPRO
     Indication: TYPE 2 DIABETES MELLITUS
     Dosage: 6 UNITS
     Dates: start: 20200807, end: 20200808
  27. NIMBEX [Concomitant]
     Active Substance: CISATRACURIUM BESYLATE
  28. LANTUS [Concomitant]
     Active Substance: INSULIN GLARGINE
     Indication: TYPE 2 DIABETES MELLITUS
     Dosage: 15 UNITS
     Dates: start: 20200808, end: 20200809
  29. MIRALAX [Concomitant]
     Active Substance: POLYETHYLENE GLYCOL 3350
     Indication: CONSTIPATION
     Dates: start: 20200812
  30. SENOKOT [Concomitant]
     Active Substance: SENNOSIDES
     Indication: CONSTIPATION
     Dates: start: 20200812
  31. ALBUMIN (HUMAN) [Concomitant]
     Active Substance: ALBUMIN HUMAN
  32. PERIDEX [CHLORHEXIDINE GLUCONATE] [Concomitant]
  33. TYLENOL [Concomitant]
     Active Substance: ACETAMINOPHEN

REACTIONS (6)
  - Encephalopathy [Not Recovered/Not Resolved]
  - COVID-19 pneumonia [Fatal]
  - Pneumomediastinum [Not Recovered/Not Resolved]
  - Sepsis [Recovered/Resolved]
  - Sepsis [Recovered/Resolved]
  - Subcutaneous emphysema [Not Recovered/Not Resolved]

NARRATIVE: CASE EVENT DATE: 20200820
